FAERS Safety Report 24733325 (Version 2)
Quarter: 2024Q4

REPORT INFORMATION
  Report Type: Spontaneous
  Country: US (occurrence: US)
  Receive Date: 20241213
  Receipt Date: 20241230
  Transmission Date: 20250115
  Serious: Yes (Other)
  Sender: CHURCH & DWIGHT
  Company Number: US-ChurchDwight-2024-CDW-02189

PATIENT
  Age: 34 Year
  Sex: Female

DRUGS (2)
  1. PEROXIE CARE TARTAR CONTROL HEALTHY GUMS BAKING SODA AND PEROXIDE [Suspect]
     Active Substance: SODIUM FLUORIDE
     Indication: Product used for unknown indication
     Dosage: ABOUT A HALF OF AN INCH
     Route: 004
     Dates: start: 20241106, end: 20241106
  2. Centrode (unspecified) [Concomitant]
     Indication: Product used for unknown indication

REACTIONS (7)
  - Erythema [Recovered/Resolved]
  - Swollen tongue [Recovered/Resolved]
  - Lip swelling [Recovered/Resolved]
  - Mouth swelling [Recovered/Resolved]
  - Tongue erythema [Recovered/Resolved]
  - Oral mucosal erythema [Recovered/Resolved]
  - Lip erythema [Recovered/Resolved]

NARRATIVE: CASE EVENT DATE: 20241106
